FAERS Safety Report 8054303-2 (Version None)
Quarter: 2012Q1

REPORT INFORMATION
  Report Type: 
  Country: None (occurrence: None)
  Receive Date: 20120118
  Receipt Date: 20120112
  Transmission Date: 20120608
  Serious: Yes (Other)
  Sender: FDA-Public Use
  Company Number: PHHY2011CA84933

PATIENT
  Sex: Female

DRUGS (1)
  1. ZOLEDRONOC ACID [Suspect]
     Indication: OSTEOPOROSIS
     Dosage: UNK
     Route: 042
     Dates: start: 20100901

REACTIONS (5)
  - RIB FRACTURE [None]
  - TRAUMATIC LUNG INJURY [None]
  - VERTIGO [None]
  - FALL [None]
  - DIZZINESS [None]
